FAERS Safety Report 7426968-7 (Version None)
Quarter: 2011Q2

REPORT INFORMATION
  Report Type: 
  Country: None (occurrence: None)
  Receive Date: 20110420
  Receipt Date: 20110414
  Transmission Date: 20111010
  Serious: Yes (Hospitalization, Other)
  Sender: FDA-Public Use
  Company Number: NL-TEVA-276517ISR

PATIENT
  Sex: Male

DRUGS (5)
  1. ETILEFRINE [Concomitant]
     Dosage: 120 MILLIGRAM;
  2. INSULIN [Concomitant]
     Indication: DIABETES MELLITUS
  3. HYZAAR [Concomitant]
     Dosage: 100/25MG X1 DAY
     Route: 048
  4. BICALUTAMIDE [Suspect]
     Dosage: 150 MILLIGRAM;
     Route: 048
     Dates: start: 20110301
  5. DUTASTERIDE [Concomitant]
     Dosage: .5 MILLIGRAM;
     Route: 048

REACTIONS (2)
  - HYPOGLYCAEMIA [None]
  - BLOOD GLUCOSE FLUCTUATION [None]
